FAERS Safety Report 24223991 (Version 1)
Quarter: 2024Q3

REPORT INFORMATION
  Report Type: Spontaneous
  Country: CA (occurrence: CA)
  Receive Date: 20240819
  Receipt Date: 20240819
  Transmission Date: 20241017
  Serious: Yes (Disabling, Other)
  Sender: BAXTER
  Company Number: CA-BAXTER-2024BAX023012

PATIENT
  Age: 6 Month
  Sex: Female

DRUGS (7)
  1. DOXORUBICIN [Suspect]
     Active Substance: DOXORUBICIN
     Indication: Atypical teratoid/rhabdoid tumour of CNS
     Dosage: UNK (DOSAGE FORM: NOT SPECIFIED)
     Route: 065
  2. ALISERTIB [Suspect]
     Active Substance: ALISERTIB
     Indication: Atypical teratoid/rhabdoid tumour of CNS
     Dosage: 60.0 MG/M2
     Route: 048
  3. CYTARABINE [Suspect]
     Active Substance: CYTARABINE
     Indication: Atypical teratoid/rhabdoid tumour of CNS
     Dosage: 60.0 MG/M2 (DOSAGE FORM:POWDER FOR SOLUTION INTRATHECAL)
     Route: 037
  4. DACTINOMYCIN [Suspect]
     Active Substance: DACTINOMYCIN
     Indication: Atypical teratoid/rhabdoid tumour of CNS
     Dosage: UNK
     Route: 065
  5. ETOPOSIDE [Suspect]
     Active Substance: ETOPOSIDE
     Indication: Atypical teratoid/rhabdoid tumour of CNS
     Dosage: UNK (DOSAGE FORM: NOT SPECIFIED)
     Route: 065
  6. HYDROCORTISONE [Suspect]
     Active Substance: HYDROCORTISONE\HYDROCORTISONE ACETATE
     Indication: Atypical teratoid/rhabdoid tumour of CNS
     Dosage: 30.0 MG/M2 (DOSAGE FORM: NOT SPECIFIED)
     Route: 037
  7. METHOTREXATE [Suspect]
     Active Substance: METHOTREXATE
     Indication: Atypical teratoid/rhabdoid tumour of CNS
     Dosage: 15.0 MG/M2 (DOSAGE FORM: SOLUTION INTRAARTERIAL) (USP SINGLE USE VIALS)
     Route: 037

REACTIONS (7)
  - Deafness [Recovered/Resolved]
  - Drug ineffective [Recovered/Resolved]
  - Hemiparesis [Recovered/Resolved]
  - Off label use [Recovered/Resolved]
  - Speech disorder developmental [Recovered/Resolved]
  - Neutropenia [Recovered/Resolved]
  - Somnolence [Recovered/Resolved]
